FAERS Safety Report 17510052 (Version 1)
Quarter: 2020Q1

REPORT INFORMATION
  Report Type: Spontaneous
  Country: US (occurrence: US)
  Receive Date: 20200306
  Receipt Date: 20200306
  Transmission Date: 20200409
  Serious: No
  Sender: FDA-Public Use
  Company Number: None

PATIENT
  Age: 54 Year
  Sex: Female

DRUGS (2)
  1. TEFLARO [Suspect]
     Active Substance: CEFTAROLINE FOSAMIL
     Indication: OSTEOMYELITIS
     Dates: start: 20190626, end: 20190714
  2. TEFLARO [Suspect]
     Active Substance: CEFTAROLINE FOSAMIL
     Indication: MULTIPLE-DRUG RESISTANCE
     Dates: start: 20190626, end: 20190714

REACTIONS (4)
  - Leukocytosis [None]
  - White blood cell count decreased [None]
  - Drug intolerance [None]
  - Therapy cessation [None]

NARRATIVE: CASE EVENT DATE: 20190715
